FAERS Safety Report 16439358 (Version 1)
Quarter: 2019Q2

REPORT INFORMATION
  Report Type: Spontaneous
  Country: GB (occurrence: GB)
  Receive Date: 20190617
  Receipt Date: 20190617
  Transmission Date: 20190711
  Serious: Yes (Other)
  Sender: FDA-Public Use
  Company Number: GB-MYLANLABS-2009S1019508

PATIENT
  Age: 7 Year
  Sex: Male

DRUGS (4)
  1. VANCOMYCIN [Suspect]
     Active Substance: VANCOMYCIN
     Indication: PRODUCT USED FOR UNKNOWN INDICATION
     Route: 065
  2. LINEZOLID. [Concomitant]
     Active Substance: LINEZOLID
     Indication: LOWER RESPIRATORY TRACT INFECTION
     Dosage: UNK
  3. DAPTOMYCIN. [Suspect]
     Active Substance: DAPTOMYCIN
     Indication: BACTERAEMIA
     Route: 042
  4. DAPTOMYCIN. [Suspect]
     Active Substance: DAPTOMYCIN
     Indication: DEVICE RELATED INFECTION

REACTIONS (4)
  - Drug ineffective for unapproved indication [Unknown]
  - Antimicrobial susceptibility test resistant [Unknown]
  - Therapy non-responder [Unknown]
  - Lower respiratory tract infection [Unknown]
